FAERS Safety Report 15098777 (Version 1)
Quarter: 2018Q3

REPORT INFORMATION
  Report Type: Spontaneous
  Country: US (occurrence: US)
  Receive Date: 20180702
  Receipt Date: 20180702
  Transmission Date: 20181010
  Serious: Yes (Other)
  Sender: FDA-Public Use
  Company Number: US-BEH-2018092200

PATIENT
  Age: 63 Year
  Sex: Female
  Weight: 54.88 kg

DRUGS (19)
  1. VALTREX [Concomitant]
     Active Substance: VALACYCLOVIR HYDROCHLORIDE
  2. CALCIUM CARBONATE W/MAGNESIUM [Concomitant]
  3. ACETAMINOPHEN. [Concomitant]
     Active Substance: ACETAMINOPHEN
  4. EPINEPHRINE. [Concomitant]
     Active Substance: EPINEPHRINE
  5. ESTROGEN [Concomitant]
     Active Substance: ESTROGENS
  6. CLONAZEPAM. [Concomitant]
     Active Substance: CLONAZEPAM
  7. PROGESTERONE. [Concomitant]
     Active Substance: PROGESTERONE
  8. L?CYSTEINE                         /00164801/ [Concomitant]
  9. VITAMIN D3 [Concomitant]
     Active Substance: CHOLECALCIFEROL
  10. EVOXAC [Concomitant]
     Active Substance: CEVIMELINE HYDROCHLORIDE
  11. HIZENTRA [Suspect]
     Active Substance: HUMAN IMMUNOGLOBULIN G
     Indication: IMMUNODEFICIENCY COMMON VARIABLE
     Dosage: UNK
     Route: 058
  12. HIZENTRA [Suspect]
     Active Substance: HUMAN IMMUNOGLOBULIN G
     Dosage: 12 G, QW
     Route: 058
     Dates: start: 20130516
  13. PROBIOTIC                          /06395501/ [Concomitant]
     Active Substance: BIFIDOBACTERIUM ANIMALIS LACTIS
  14. WELLBUTRIN [Concomitant]
     Active Substance: BUPROPION HYDROCHLORIDE
  15. DIPHENHYDRAMINE. [Concomitant]
     Active Substance: DIPHENHYDRAMINE
  16. LIDOCAINE. [Concomitant]
     Active Substance: LIDOCAINE
  17. VITAMIN A                          /00056001/ [Concomitant]
     Active Substance: RETINOL
  18. VALIUM [Concomitant]
     Active Substance: DIAZEPAM
  19. BIOTIN [Concomitant]
     Active Substance: BIOTIN

REACTIONS (1)
  - Epstein-Barr virus infection [Unknown]
